FAERS Safety Report 8436606-2 (Version None)
Quarter: 2012Q2

REPORT INFORMATION
  Report Type: 
  Country: None (occurrence: None)
  Receive Date: 20120614
  Receipt Date: 20120605
  Transmission Date: 20120825
  Serious: Yes (Hospitalization, Other)
  Sender: FDA-Public Use
  Company Number: US-ASTRAZENECA-2011SE15304

PATIENT
  Age: 60 Year
  Sex: Female

DRUGS (20)
  1. TOPROL-XL [Suspect]
     Route: 048
     Dates: start: 20110316
  2. PROZAC [Concomitant]
  3. TOPROL-XL [Suspect]
     Route: 048
     Dates: start: 20110623
  4. FUROSEMIDE [Concomitant]
  5. PERCOCET [Concomitant]
     Route: 065
  6. TOPROL-XL [Suspect]
     Route: 048
  7. TOPROL-XL [Suspect]
     Route: 048
  8. UNSPECIFIED [Suspect]
     Route: 065
  9. WATER PILL [Concomitant]
     Route: 065
  10. ANESTHESIA [Concomitant]
     Route: 065
  11. TOPROL-XL [Suspect]
     Route: 048
  12. OXYCONTIN [Concomitant]
     Route: 065
  13. STEROID INJECTIONS [Concomitant]
  14. TOPROL-XL [Suspect]
     Route: 048
     Dates: start: 20111118
  15. 20 OTHER MEDICATIONS [Concomitant]
     Route: 065
  16. LANTUS [Concomitant]
  17. VARIOUS VITAMINS [Concomitant]
     Route: 065
  18. LIDOCAINE [Concomitant]
  19. POTASSIUM ACETATE [Concomitant]
  20. OXYCODONE HCL [Concomitant]
     Route: 065

REACTIONS (37)
  - SKIN CANCER [None]
  - INTERVERTEBRAL DISC PROTRUSION [None]
  - ADVERSE EVENT [None]
  - CONFUSIONAL STATE [None]
  - MEMORY IMPAIRMENT [None]
  - DRUG DOSE OMISSION [None]
  - ROAD TRAFFIC ACCIDENT [None]
  - CATARACT [None]
  - DIABETES MELLITUS INADEQUATE CONTROL [None]
  - HYPERPHAGIA [None]
  - MUSCULOSKELETAL DISCOMFORT [None]
  - HEADACHE [None]
  - RASH MACULAR [None]
  - CYST [None]
  - MENISCUS LESION [None]
  - READING DISORDER [None]
  - SPONDYLITIS [None]
  - DIZZINESS [None]
  - WEIGHT DECREASED [None]
  - GRIP STRENGTH DECREASED [None]
  - MALAISE [None]
  - DIABETES MELLITUS [None]
  - MOBILITY DECREASED [None]
  - BRAIN INJURY [None]
  - FIBROMYALGIA [None]
  - BRONCHITIS [None]
  - HYPERTENSION [None]
  - HEAD INJURY [None]
  - BRONCHOPNEUMONIA [None]
  - VIRAL INFECTION [None]
  - MUSCLE SPASMS [None]
  - NERVE INJURY [None]
  - BRAIN COMPRESSION [None]
  - DRUG INEFFECTIVE [None]
  - PAIN [None]
  - PLEURITIC PAIN [None]
  - ARTHRITIS [None]
